FAERS Safety Report 6524760-9 (Version None)
Quarter: 2009Q4

REPORT INFORMATION
  Report Type: 
  Country: None (occurrence: None)
  Receive Date: 20091230
  Receipt Date: 20091230
  Transmission Date: 20100525
  Serious: Yes (Other)
  Sender: FDA-Public Use
  Company Number: None

PATIENT
  Age: 71 Year
  Sex: Female
  Weight: 68.0396 kg

DRUGS (2)
  1. CRESTOR [Suspect]
     Indication: BLOOD CHOLESTEROL INCREASED
     Dosage: 5 MG 1 X D
     Dates: start: 20060101
  2. CRESTOR [Suspect]
     Indication: BLOOD CHOLESTEROL INCREASED
     Dosage: 5 MG 1 X D
     Dates: start: 20090101

REACTIONS (6)
  - BONE PAIN [None]
  - CONFUSIONAL STATE [None]
  - INSOMNIA [None]
  - OSTEOARTHRITIS [None]
  - PAIN [None]
  - STRESS [None]
